FAERS Safety Report 11837996 (Version 2)
Quarter: 2016Q3

REPORT INFORMATION
  Report Type: Report from Study
  Country: PL (occurrence: PL)
  Receive Date: 20151215
  Receipt Date: 20160706
  Transmission Date: 20161109
  Serious: Yes (Death)
  Sender: FDA-Public Use
  Company Number: PL-PFIZER INC-2015443213

PATIENT
  Age: 65 Year
  Sex: Male
  Weight: 62 kg

DRUGS (11)
  1. DEXAMETHASONE. [Concomitant]
     Active Substance: DEXAMETHASONE
     Indication: PREMEDICATION
     Dosage: 20 MG, 2X/DAY
     Route: 042
     Dates: start: 20151119, end: 20151119
  2. CARBOPLATIN. [Suspect]
     Active Substance: CARBOPLATIN
     Indication: NON-SMALL CELL LUNG CANCER
     Dosage: 881.13 MG, EVERY 3 WEEKS
     Route: 042
     Dates: start: 20151119, end: 20151119
  3. ZOFRAN [Concomitant]
     Active Substance: ONDANSETRON HYDROCHLORIDE
     Indication: ANTIEMETIC SUPPORTIVE CARE
     Dosage: 16 MG, 1X/DAY, ONCE
     Route: 042
     Dates: start: 20151119, end: 20151119
  4. KETONAL [Concomitant]
     Active Substance: KETOPROFEN
     Dosage: 0.05 G, 1X/DAY
     Route: 048
     Dates: start: 20151119, end: 20151119
  5. BUSCOLIZYN [Concomitant]
     Dosage: 20 MG, 1X/DAY
     Route: 042
     Dates: start: 20151119, end: 20151119
  6. IPP /00661201/ [Concomitant]
     Indication: PREMEDICATION
     Dosage: 20 MG, 1X/DAY
     Route: 048
     Dates: start: 20151119, end: 20151119
  7. PF-06439535 [Suspect]
     Active Substance: INVESTIGATIONAL PRODUCT
     Indication: NON-SMALL CELL LUNG CANCER
     Dosage: 930 MG, EVERY 3 WEEKS
     Route: 042
     Dates: start: 20151119, end: 20151119
  8. PACLITAXEL. [Suspect]
     Active Substance: PACLITAXEL
     Indication: NON-SMALL CELL LUNG CANCER
     Dosage: 348 MG, EVERY 3 WEEKS
     Route: 042
     Dates: start: 20151119, end: 20151119
  9. NATRIUM CHLORATUM 0.9% [Concomitant]
     Dosage: 500 ML, 1X/DAY
     Route: 042
     Dates: start: 20151119, end: 20151119
  10. CLEMASTIN [Concomitant]
     Active Substance: CLEMASTINE
     Indication: PREMEDICATION
     Dosage: 2 MG, 1X/DAY, ONCE
     Route: 042
     Dates: start: 20151119, end: 20151119
  11. RANIGAST [Concomitant]
     Indication: PREMEDICATION
     Dosage: 50 MG, 1X/DAY, ONCE
     Route: 042
     Dates: start: 20151119, end: 20151119

REACTIONS (1)
  - Death [Fatal]

NARRATIVE: CASE EVENT DATE: 20151123
